FAERS Safety Report 26133737 (Version 1)
Quarter: 2025Q4

REPORT INFORMATION
  Report Type: Spontaneous
  Country: JP (occurrence: JP)
  Receive Date: 20251209
  Receipt Date: 20251209
  Transmission Date: 20260117
  Serious: Yes (Other)
  Sender: BIOCODEX
  Company Number: JP-BIOCODEX2-2025001921

PATIENT
  Age: 21 Year
  Sex: Female

DRUGS (10)
  1. DIACOMIT [Suspect]
     Active Substance: STIRIPENTOL
     Indication: Severe myoclonic epilepsy of infancy
     Dosage: 250 MG/DAY
  2. DIACOMIT [Suspect]
     Active Substance: STIRIPENTOL
     Dosage: 1,000 MG/DAY
  3. DIACOMIT [Suspect]
     Active Substance: STIRIPENTOL
     Route: 048
  4. DIACOMIT [Suspect]
     Active Substance: STIRIPENTOL
     Route: 048
  5. valproatic acid [Concomitant]
     Indication: Severe myoclonic epilepsy of infancy
     Dosage: 600 MG/DAY
  6. valproatic acid [Concomitant]
  7. CLOBAZAM [Concomitant]
     Active Substance: CLOBAZAM
     Indication: Severe myoclonic epilepsy of infancy
     Dosage: 1 MG
  8. CLOBAZAM [Concomitant]
     Active Substance: CLOBAZAM
  9. LAMOTRIGINE [Concomitant]
     Active Substance: LAMOTRIGINE
     Indication: Product used for unknown indication
     Dosage: 150MG
  10. LAMOTRIGINE [Concomitant]
     Active Substance: LAMOTRIGINE

REACTIONS (1)
  - Seizure [Recovering/Resolving]
